FAERS Safety Report 24841459 (Version 2)
Quarter: 2025Q1

REPORT INFORMATION
  Report Type: Spontaneous
  Country: US (occurrence: US)
  Receive Date: 20250114
  Receipt Date: 20250327
  Transmission Date: 20250409
  Serious: No
  Sender: PFIZER
  Company Number: US-PFIZER INC-202500006549

PATIENT
  Age: 66 Year
  Sex: Male
  Weight: 80.74 kg

DRUGS (4)
  1. TESTOSTERONE CYPIONATE [Suspect]
     Active Substance: TESTOSTERONE CYPIONATE
     Indication: Hormone replacement therapy
     Dosage: UNK UNK, WEEKLY (ONCE A WEEK
  2. ASPIRIN [Concomitant]
     Active Substance: ASPIRIN
     Indication: Atrial fibrillation
  3. LEVOTHYROXINE [Concomitant]
     Active Substance: LEVOTHYROXINE
     Dosage: 150 UG, 1X/DAY
  4. METOPROLOL [Concomitant]
     Active Substance: METOPROLOL
     Indication: Hypertension
     Dosage: 37.5, 2X/DAY (ONCE IN  THE MORNING, ONCE IN THE EVENING)

REACTIONS (4)
  - Poor quality product administered [Unknown]
  - Product deposit [Unknown]
  - Liquid product physical issue [Unknown]
  - Malaise [Unknown]
